FAERS Safety Report 9563822 (Version 1)
Quarter: 2013Q3

REPORT INFORMATION
  Report Type: Spontaneous
  Country: US (occurrence: None)
  Receive Date: 20130926
  Receipt Date: 20130926
  Transmission Date: 20140515
  Serious: Yes (Hospitalization)
  Sender: FDA-Public Use
  Company Number: None

PATIENT
  Age: 70 Year
  Sex: Female
  Weight: 58.97 kg

DRUGS (1)
  1. MOXIFLOXACIN [Suspect]

REACTIONS (6)
  - Palpitations [None]
  - Chest pain [None]
  - Urinary tract infection [None]
  - Pyelonephritis [None]
  - Asthenia [None]
  - Renal disorder [None]
